FAERS Safety Report 10159159 (Version 4)
Quarter: 2014Q2

REPORT INFORMATION
  Report Type: Report from Study
  Country: CA (occurrence: CA)
  Receive Date: 20140508
  Receipt Date: 20140625
  Transmission Date: 20141212
  Serious: Yes (Hospitalization)
  Sender: FDA-Public Use
  Company Number: CA-ROCHE-1349694

PATIENT
  Age: 71 Year
  Sex: Male

DRUGS (10)
  1. AVASTIN [Suspect]
     Indication: NON-SMALL CELL LUNG CANCER
     Route: 042
     Dates: start: 20131213
  2. AVASTIN [Suspect]
     Route: 042
     Dates: start: 20140102, end: 20140417
  3. AVASTIN [Suspect]
     Route: 042
     Dates: end: 20140417
  4. TECTA [Concomitant]
  5. PRADAX [Concomitant]
  6. DIGOXIN [Concomitant]
  7. LASIX [Concomitant]
  8. CRESTOR [Concomitant]
  9. DIOVAN [Concomitant]
  10. SLOW K [Concomitant]

REACTIONS (12)
  - Red cell distribution width increased [Unknown]
  - Lymphocyte count decreased [Unknown]
  - Haematocrit decreased [Unknown]
  - Red blood cell count decreased [Unknown]
  - Haemoglobin decreased [Unknown]
  - Fatigue [Unknown]
  - Dyspnoea [Unknown]
  - Musculoskeletal chest pain [Not Recovered/Not Resolved]
  - Increased upper airway secretion [Not Recovered/Not Resolved]
  - Intestinal obstruction [Recovering/Resolving]
  - Arthralgia [Not Recovered/Not Resolved]
  - Drug effect decreased [Unknown]
